FAERS Safety Report 9570536 (Version 1)
Quarter: 2013Q4

REPORT INFORMATION
  Report Type: Report from Study
  Country: US (occurrence: US)
  Receive Date: 20131001
  Receipt Date: 20131001
  Transmission Date: 20140711
  Serious: Yes (Other)
  Sender: FDA-Public Use
  Company Number: US-ROCHE-1282132

PATIENT
  Sex: 0

DRUGS (4)
  1. BEVACIZUMAB [Suspect]
     Indication: COLORECTAL CANCER
     Route: 065
  2. OXALIPLATIN [Suspect]
     Indication: COLORECTAL CANCER
     Route: 042
  3. LEUCOVORIN [Suspect]
     Indication: COLORECTAL CANCER
     Route: 065
  4. 5-FLUOROURACIL [Suspect]
     Indication: COLORECTAL CANCER
     Route: 065

REACTIONS (1)
  - Neuropathy peripheral [Unknown]
